FAERS Safety Report 5645542-6 (Version None)
Quarter: 2008Q1

REPORT INFORMATION
  Report Type: 
  Country: None (occurrence: None)
  Receive Date: 20080229
  Receipt Date: 20080215
  Transmission Date: 20080703
  Serious: Yes (Hospitalization)
  Sender: FDA-Public Use
  Company Number: US-BAYER-US-2007-034748

PATIENT
  Age: 75 Year
  Sex: Male
  Weight: 84 kg

DRUGS (5)
  1. MAGNEVIST [Suspect]
     Indication: NUCLEAR MAGNETIC RESONANCE IMAGING
     Dosage: UNIT DOSE: 20 ML
     Route: 042
     Dates: start: 20070625, end: 20070625
  2. NORVASC [Concomitant]
     Dosage: UNIT DOSE: 5 MG
     Route: 048
  3. BENICAR [Concomitant]
     Dosage: UNIT DOSE: 40 MG
     Route: 048
  4. PRILOSEC [Concomitant]
     Dosage: UNIT DOSE: 20 MG
     Route: 048
  5. AMBIEN [Concomitant]
     Route: 048

REACTIONS (2)
  - LIVEDO RETICULARIS [None]
  - SKIN DISCOLOURATION [None]
